FAERS Safety Report 4561532-9 (Version None)
Quarter: 2005Q1

REPORT INFORMATION
  Report Type: 
  Country: None (occurrence: None)
  Receive Date: 20050121
  Receipt Date: 20050105
  Transmission Date: 20050727
  Serious: Yes (Death)
  Sender: FDA-Public Use
  Company Number: USA050187526

PATIENT
  Age: 22 Year
  Sex: Female

DRUGS (5)
  1. XIGRIS [Suspect]
     Indication: SEPSIS
     Dates: start: 20041201
  2. LEVOPHED [Concomitant]
  3. EPINEPHRINE [Concomitant]
  4. VASOPRESSIN INJECTION [Concomitant]
  5. SODIUM BICARBONATE [Concomitant]

REACTIONS (2)
  - METABOLIC ACIDOSIS [None]
  - PROCEDURAL COMPLICATION [None]
